FAERS Safety Report 8977763 (Version 1)
Quarter: 2012Q4

REPORT INFORMATION
  Report Type: 
  Country: GB (occurrence: GB)
  Receive Date: 20121220
  Receipt Date: 20121220
  Transmission Date: 20130627
  Serious: Yes (Hospitalization)
  Sender: FDA-Public Use
  Company Number: GB-TEVA-375911ISR

PATIENT
  Age: 90 Year
  Sex: Female

DRUGS (8)
  1. TRIMETHOPRIM [Suspect]
     Indication: URINARY TRACT INFECTION
     Dosage: 400 Milligram Daily; Five day course, course completed
     Route: 048
     Dates: start: 20110916, end: 20110920
  2. TRIMETHOPRIM [Interacting]
     Dosage: Three days
     Route: 048
  3. RAMIPRIL [Interacting]
     Dosage: 5 Milligram Daily; At night
  4. FERROUS SULPHATE [Concomitant]
  5. ZOPICLONE [Concomitant]
  6. CLOPIDOGREL [Concomitant]
  7. ISOSORBIDE MONONITRATE [Concomitant]
  8. BISOPROLOL [Concomitant]

REACTIONS (8)
  - Fall [Unknown]
  - Hyperkalaemia [Recovered/Resolved]
  - Renal failure acute [Recovered/Resolved]
  - Renal impairment [Unknown]
  - Cardiac disorder [Unknown]
  - Hypertension [Unknown]
  - Drug interaction [Unknown]
  - Cough [Unknown]
